FAERS Safety Report 7275215-8 (Version None)
Quarter: 2011Q1

REPORT INFORMATION
  Report Type: 
  Country: None (occurrence: None)
  Receive Date: 20110204
  Receipt Date: 20110126
  Transmission Date: 20110831
  Serious: Yes (Hospitalization, Other)
  Sender: FDA-Public Use
  Company Number: PHHO2010HK09476

PATIENT
  Sex: Male
  Weight: 53.5 kg

DRUGS (4)
  1. AFINITOR [Suspect]
     Indication: METASTATIC RENAL CELL CARCINOMA
     Dosage: 10 MG, QD
     Route: 048
     Dates: start: 20100504
  2. AFINITOR [Suspect]
     Dosage: 5 MG, QD
     Route: 048
  3. ESOMEPRAZOLE [Concomitant]
  4. LEVOTHYROXINE SODIUM [Concomitant]
     Indication: HYPOTHYROIDISM

REACTIONS (4)
  - INTESTINAL OBSTRUCTION [None]
  - DIARRHOEA [None]
  - VOMITING [None]
  - ABDOMINAL DISTENSION [None]
